FAERS Safety Report 17297762 (Version 4)
Quarter: 2020Q1

REPORT INFORMATION
  Report Type: Spontaneous
  Country: JP (occurrence: JP)
  Receive Date: 20200121
  Receipt Date: 20200326
  Transmission Date: 20200409
  Serious: Yes (Hospitalization, Disabling)
  Sender: FDA-Public Use
  Company Number: JP-JNJFOC-20190810876

PATIENT
  Age: 76 Year
  Sex: Male
  Weight: 43 kg

DRUGS (7)
  1. SERENASE                           /00027401/ [Suspect]
     Active Substance: HALOPERIDOL
     Indication: POSTOPERATIVE DELIRIUM
     Route: 065
     Dates: start: 20190701
  2. LUNESTA [Concomitant]
     Active Substance: ESZOPICLONE
     Route: 048
  3. ALPRAZOLAM. [Concomitant]
     Active Substance: ALPRAZOLAM
     Route: 048
  4. RISPERDAL CONSTA [Suspect]
     Active Substance: RISPERIDONE
     Indication: POSTOPERATIVE DELIRIUM
     Route: 030
     Dates: start: 20190701, end: 20190701
  5. KEISHIKASHAKUYAKUDAIOTO [Concomitant]
     Active Substance: HERBALS
     Dosage: GRANULATED POWDER
     Route: 048
  6. MIRTAZAPINE. [Concomitant]
     Active Substance: MIRTAZAPINE
     Route: 048
  7. LORAMET [Concomitant]
     Active Substance: LORMETAZEPAM
     Route: 048

REACTIONS (7)
  - Off label use [Unknown]
  - Pneumonia [Recovered/Resolved with Sequelae]
  - Sedation complication [Recovered/Resolved]
  - Product use in unapproved indication [Unknown]
  - Disuse syndrome [Recovering/Resolving]
  - Hypoxia [Recovered/Resolved]
  - Pneumonia aspiration [Recovered/Resolved with Sequelae]

NARRATIVE: CASE EVENT DATE: 20190701
